FAERS Safety Report 5447326-0 (Version None)
Quarter: 2007Q3

REPORT INFORMATION
  Report Type: 
  Country: None (occurrence: None)
  Receive Date: 20070905
  Receipt Date: 20070905
  Transmission Date: 20080115
  Serious: No
  Sender: FDA-Public Use
  Company Number: None

PATIENT
  Sex: Female
  Weight: 70.7611 kg

DRUGS (1)
  1. ^SALINE NASAL SPRAY^ ^GOOD NEIGHBOR PHARMACY ^SPRAY TWICE EA. NOSTRIL [Suspect]
     Indication: NASAL DRYNESS
     Dosage: AS NEEDED AS NEEDED SPRAY
     Dates: start: 20070801

REACTIONS (6)
  - APPLICATION SITE ERYTHEMA [None]
  - APPLICATION SITE IRRITATION [None]
  - APPLICATION SITE PAIN [None]
  - NASAL CONGESTION [None]
  - NASAL DISCOMFORT [None]
  - PHARMACEUTICAL PRODUCT COMPLAINT [None]
